FAERS Safety Report 7425425-1 (Version None)
Quarter: 2011Q2

REPORT INFORMATION
  Report Type: 
  Country: None (occurrence: None)
  Receive Date: 20110420
  Receipt Date: 20110412
  Transmission Date: 20111010
  Serious: Yes (Other)
  Sender: FDA-Public Use
  Company Number: US-ASTELLAS-2011US001550

PATIENT
  Age: 84 Year
  Sex: Female

DRUGS (1)
  1. LEXISCAN [Suspect]
     Indication: SCAN MYOCARDIAL PERFUSION
     Dosage: UNK
     Route: 042
     Dates: start: 20110412, end: 20110412

REACTIONS (4)
  - LOSS OF CONSCIOUSNESS [None]
  - ANAEMIA [None]
  - HYPOTENSION [None]
  - BRADYCARDIA [None]
